FAERS Safety Report 13479828 (Version 2)
Quarter: 2017Q2

REPORT INFORMATION
  Report Type: Spontaneous
  Country: BR (occurrence: BR)
  Receive Date: 20170424
  Receipt Date: 20170605
  Transmission Date: 20170830
  Serious: Yes (Other)
  Sender: FDA-Public Use
  Company Number: PHHY2017BR058814

PATIENT
  Sex: Female
  Weight: 96.7 kg

DRUGS (1)
  1. FORASEQ [Suspect]
     Active Substance: BUDESONIDE\FORMOTEROL FUMARATE
     Indication: LUNG DISORDER
     Dosage: 2 DF, Q12H (60 +60 CAPSULE)
     Route: 055

REACTIONS (10)
  - Asphyxia [Recovering/Resolving]
  - Gait disturbance [Recovering/Resolving]
  - Saliva altered [Recovering/Resolving]
  - Hyperthyroidism [Recovering/Resolving]
  - Pulmonary hypertension [Recovering/Resolving]
  - Dyspnoea [Recovering/Resolving]
  - Candida infection [Recovering/Resolving]
  - Product physical issue [Unknown]
  - Lupus pneumonitis [Recovering/Resolving]
  - Pleural effusion [Recovering/Resolving]
